FAERS Safety Report 18063303 (Version 2)
Quarter: 2020Q3

REPORT INFORMATION
  Report Type: Spontaneous
  Country: RS (occurrence: RS)
  Receive Date: 20200724
  Receipt Date: 20200731
  Transmission Date: 20201103
  Serious: Yes (Death, Other)
  Sender: FDA-Public Use
  Company Number: RS-ROCHE-2646921

PATIENT
  Age: 41 Year
  Sex: Male

DRUGS (1)
  1. ZELBORAF [Suspect]
     Active Substance: VEMURAFENIB
     Indication: METASTATIC MALIGNANT MELANOMA
     Dosage: 2*960 MG, RECEIVED 6 CYCLES
     Route: 048
     Dates: start: 20170328, end: 20170922

REACTIONS (11)
  - Rash [Recovered/Resolved]
  - Blood lactate dehydrogenase increased [Recovered/Resolved]
  - Anaemia [Unknown]
  - Arthralgia [Recovered/Resolved]
  - Diarrhoea [Recovered/Resolved]
  - Disease progression [Fatal]
  - Fatigue [Recovered/Resolved]
  - Neutropenia [Recovered/Resolved]
  - Azotaemia [Recovered/Resolved]
  - Transaminases [Recovered/Resolved]
  - Peripheral sensory neuropathy [Recovered/Resolved]

NARRATIVE: CASE EVENT DATE: 201709
